FAERS Safety Report 5579138-1 (Version None)
Quarter: 2007Q4

REPORT INFORMATION
  Report Type: 
  Country: None (occurrence: None)
  Receive Date: 20071227
  Receipt Date: 20071227
  Transmission Date: 20080405
  Serious: Yes (Other)
  Sender: FDA-Public Use
  Company Number: None

PATIENT
  Sex: Female
  Weight: 92.27 kg

DRUGS (1)
  1. RISPERDAL [Suspect]

REACTIONS (2)
  - RESTLESSNESS [None]
  - TREMOR [None]
